FAERS Safety Report 6724833-1 (Version None)
Quarter: 2010Q2

REPORT INFORMATION
  Report Type: 
  Country: None (occurrence: None)
  Receive Date: 20100513
  Receipt Date: 20100513
  Transmission Date: 20101027
  Serious: Yes (Hospitalization, Other)
  Sender: FDA-Public Use
  Company Number: None

PATIENT
  Sex: Female
  Weight: 77.1115 kg

DRUGS (1)
  1. FOSAMAX [Suspect]
     Indication: OSTEOPOROSIS
     Dosage: 1 PILL WEEKLY PO
     Route: 048

REACTIONS (5)
  - ANXIETY [None]
  - FALL [None]
  - FEMUR FRACTURE [None]
  - GRIEF REACTION [None]
  - STRESS FRACTURE [None]
